FAERS Safety Report 13483968 (Version 2)
Quarter: 2017Q2

REPORT INFORMATION
  Report Type: Spontaneous
  Country: US (occurrence: US)
  Receive Date: 20170426
  Receipt Date: 20170607
  Transmission Date: 20170830
  Serious: No
  Sender: FDA-Public Use
  Company Number: US-JNJFOC-20170415478

PATIENT
  Age: 24 Year
  Sex: Female

DRUGS (2)
  1. RISPERDAL M-TAB [Suspect]
     Active Substance: RISPERIDONE
     Indication: INSOMNIA
     Route: 048
     Dates: start: 2003
  2. RISPERDAL M-TAB [Suspect]
     Active Substance: RISPERIDONE
     Indication: MENTAL DISABILITY
     Route: 048
     Dates: start: 2003

REACTIONS (4)
  - Product availability issue [Unknown]
  - Drug dose omission [Unknown]
  - Product use in unapproved indication [Unknown]
  - Insomnia [Not Recovered/Not Resolved]

NARRATIVE: CASE EVENT DATE: 2003
